FAERS Safety Report 9085442 (Version 1)
Quarter: 2013Q1

REPORT INFORMATION
  Report Type: Spontaneous
  Country: US (occurrence: US)
  Receive Date: 20130130
  Receipt Date: 20130130
  Transmission Date: 20140127
  Serious: No
  Sender: FDA-Public Use
  Company Number: US-ABBOTT-12P-163-0983678-00

PATIENT
  Age: 15 Year
  Sex: Female

DRUGS (1)
  1. HUMIRA [Suspect]
     Indication: CROHN^S DISEASE
     Dosage: STARTER PACK STARTED ON 18 SEP 2012
     Dates: start: 20120918, end: 20120918

REACTIONS (2)
  - Injection site erythema [Recovered/Resolved]
  - Rash [Recovering/Resolving]
